FAERS Safety Report 13621582 (Version 2)
Quarter: 2017Q3

REPORT INFORMATION
  Report Type: Spontaneous
  Country: US (occurrence: US)
  Receive Date: 20170607
  Receipt Date: 20170703
  Transmission Date: 20171127
  Serious: No
  Sender: FDA-Public Use
  Company Number: PHEH2017US017240

PATIENT
  Age: 37 Year
  Sex: Female
  Weight: 172 kg

DRUGS (3)
  1. COSENTYX [Suspect]
     Active Substance: SECUKINUMAB
     Indication: PSORIASIS
     Dosage: 300 MG, QW
     Route: 058
     Dates: start: 20170501
  2. COSENTYX [Suspect]
     Active Substance: SECUKINUMAB
     Dosage: 300 MG, UNK (STARTING 300 MG WEEKLY FOR 5 WEEKS THEN 300 MG MONTHLY)
     Route: 058
     Dates: start: 20170518
  3. COSENTYX [Suspect]
     Active Substance: SECUKINUMAB
     Dosage: 300 MG, UNK (STARTING 300 MG WEEKLY FOR 5 WEEKS THEN 300 MG MONTHLY)
     Route: 058
     Dates: start: 20170601

REACTIONS (1)
  - Injection site urticaria [Unknown]

NARRATIVE: CASE EVENT DATE: 20170601
